FAERS Safety Report 12743081 (Version 1)
Quarter: 2016Q3

REPORT INFORMATION
  Report Type: Spontaneous
  Country: US (occurrence: US)
  Receive Date: 20160914
  Receipt Date: 20160914
  Transmission Date: 20161109
  Serious: No
  Sender: FDA-Public Use
  Company Number: US-SIGMA-TAU US-2016STPI000435

PATIENT
  Age: 36 Year
  Sex: Male

DRUGS (7)
  1. MATULANE [Suspect]
     Active Substance: PROCARBAZINE HYDROCHLORIDE
     Indication: BRAIN NEOPLASM MALIGNANT
     Dosage: UNK
  2. CLONAZEPAM. [Concomitant]
     Active Substance: CLONAZEPAM
     Dosage: 1 MG, UNK
  3. DEPAKOTE [Concomitant]
     Active Substance: DIVALPROEX SODIUM
     Dosage: 500 MG, UNK
  4. INVOKANA [Concomitant]
     Active Substance: CANAGLIFLOZIN
  5. ROBAXIN [Concomitant]
     Active Substance: METHOCARBAMOL
     Dosage: 750 MG, UNK
  6. HYDROCODONE BITARTRATE AND ACETAMINOPHEN [Concomitant]
     Active Substance: ACETAMINOPHEN\HYDROCODONE BITARTRATE
  7. METFORMIN [Concomitant]
     Active Substance: METFORMIN HYDROCHLORIDE
     Dosage: 1000 MG, UNK

REACTIONS (1)
  - Fatigue [Unknown]

NARRATIVE: CASE EVENT DATE: 20160611
